FAERS Safety Report 9670851 (Version 3)
Quarter: 2014Q1

REPORT INFORMATION
  Report Type: Spontaneous
  Country: JP (occurrence: JP)
  Receive Date: 20131106
  Receipt Date: 20140115
  Transmission Date: 20141002
  Serious: Yes (Other)
  Sender: FDA-Public Use
  Company Number: PHHY2013JP124475

PATIENT
  Age: 66 Year
  Sex: Female

DRUGS (3)
  1. ZOMETA [Suspect]
     Indication: METASTASES TO BONE
     Dosage: 4 MG
     Route: 042
     Dates: start: 200909, end: 201005
  2. TAXOL [Concomitant]
  3. PREDONINE [Concomitant]

REACTIONS (3)
  - Osteonecrosis of jaw [Recovered/Resolved]
  - Purulent discharge [Unknown]
  - Toothache [Unknown]
